FAERS Safety Report 4595822-0 (Version None)
Quarter: 2005Q1

REPORT INFORMATION
  Report Type: 
  Country: None (occurrence: None)
  Receive Date: 20050224
  Receipt Date: 20050211
  Transmission Date: 20050727
  Serious: Yes (Life-Threatening, Hospitalization)
  Sender: FDA-Public Use
  Company Number: 220001N04FRA

PATIENT
  Age: 25 Year
  Sex: Female
  Weight: 78.6 kg

DRUGS (11)
  1. SAIZEN [Suspect]
     Indication: ENDOCRINE DISORDER
     Dosage: SEE IMAGE
     Route: 058
     Dates: start: 20040227, end: 20040809
  2. SAIZEN [Suspect]
     Indication: ENDOCRINE DISORDER
     Dosage: SEE IMAGE
     Route: 058
     Dates: start: 20050125
  3. LEVOTHYROXINE [Concomitant]
  4. HYDROCORTISONE [Concomitant]
  5. DESMOPRESSION ACETATE [Concomitant]
  6. PAROXETINE HYDROCHLORIDE [Concomitant]
  7. ORLISTAT [Concomitant]
  8. EUGYNON [Concomitant]
  9. DIAZEPAM [Concomitant]
  10. LOXAPINE SUCCINATE [Concomitant]
  11. SPASMINE [Concomitant]

REACTIONS (4)
  - DEPRESSION [None]
  - FRACTURE [None]
  - POLYTRAUMATISM [None]
  - SUICIDE ATTEMPT [None]
